FAERS Safety Report 4427322-2 (Version None)
Quarter: 2004Q3

REPORT INFORMATION
  Report Type: 
  Country: None (occurrence: None)
  Receive Date: 20040813
  Receipt Date: 20040813
  Transmission Date: 20050211
  Serious: Yes (Life-Threatening)
  Sender: FDA-Public Use
  Company Number: None

PATIENT
  Age: 56 Year
  Sex: Female
  Weight: 68.0396 kg

DRUGS (1)
  1. AMEVIVE [Suspect]
     Indication: PSORIASIS
     Dosage: SUBCUTANEOUS
     Route: 058
     Dates: start: 20030701, end: 20031001

REACTIONS (5)
  - CD4 LYMPHOCYTES [None]
  - DEAFNESS [None]
  - FACIAL PALSY [None]
  - IMMUNOSUPPRESSION [None]
  - MALIGNANT MELANOMA [None]
